FAERS Safety Report 24121500 (Version 2)
Quarter: 2024Q3

REPORT INFORMATION
  Report Type: Spontaneous
  Country: US (occurrence: US)
  Receive Date: 20240722
  Receipt Date: 20240723
  Transmission Date: 20241017
  Serious: No
  Sender: JOHNSON AND JOHNSON
  Company Number: US-VIIV HEALTHCARE LIMITED-US2024AMR089077

PATIENT
  Sex: Male

DRUGS (6)
  1. RILPIVIRINE [Suspect]
     Active Substance: RILPIVIRINE
     Indication: Asymptomatic HIV infection
     Dosage: UNK UNK, Q2M 600/900 MG
     Route: 030
     Dates: start: 20231019
  2. CABOTEGRAVIR [Suspect]
     Active Substance: CABOTEGRAVIR
     Indication: Asymptomatic HIV infection
     Dosage: UNK UNK, Q2M 600/900 MG
     Route: 030
     Dates: start: 20231019
  3. MONTELUKAST SODIUM [Concomitant]
     Active Substance: MONTELUKAST SODIUM
     Indication: Product used for unknown indication
     Dosage: 10 MG
  4. TRIMEBUTINE MALEATE [Concomitant]
     Active Substance: TRIMEBUTINE MALEATE
     Indication: Product used for unknown indication
     Dosage: UNK 5-20 MG
  5. FLUOXETINE HYDROCHLORIDE [Concomitant]
     Active Substance: FLUOXETINE HYDROCHLORIDE
     Indication: Product used for unknown indication
     Dosage: 40 MG
  6. AMITRIPTYLINE HYDROCHLORIDE [Concomitant]
     Active Substance: AMITRIPTYLINE HYDROCHLORIDE
     Indication: Product used for unknown indication
     Dosage: 25 MG

REACTIONS (1)
  - Injection site pain [Recovering/Resolving]
